FAERS Safety Report 21397489 (Version 1)
Quarter: 2022Q3

REPORT INFORMATION
  Report Type: Spontaneous
  Country: RO (occurrence: None)
  Receive Date: 20220930
  Receipt Date: 20220930
  Transmission Date: 20221026
  Serious: Yes (Other)
  Sender: FDA-Public Use
  Company Number: 2022A328375

PATIENT
  Age: 810 Month
  Sex: Male

DRUGS (1)
  1. FASENRA [Suspect]
     Active Substance: BENRALIZUMAB
     Indication: Asthma
     Route: 058
     Dates: start: 20210506

REACTIONS (2)
  - Metastases to liver [Unknown]
  - Rectosigmoid cancer [Unknown]

NARRATIVE: CASE EVENT DATE: 20220801
